FAERS Safety Report 9887558 (Version 1)
Quarter: 2014Q1

REPORT INFORMATION
  Report Type: Spontaneous
  Country: US (occurrence: US)
  Receive Date: 20140211
  Receipt Date: 20140211
  Transmission Date: 20141002
  Serious: Yes (Other)
  Sender: FDA-Public Use
  Company Number: US-ROCHE-1343510

PATIENT
  Age: 60 Year
  Sex: Male

DRUGS (8)
  1. PEG-INTERFERON ALFA 2A [Suspect]
     Indication: HEPATITIS C VIRUS TEST POSITIVE
     Route: 065
  2. RIBAVIRIN [Suspect]
     Indication: HEPATITIS C VIRUS TEST POSITIVE
     Route: 065
  3. RITUXIMAB [Suspect]
     Indication: DIFFUSE LARGE B-CELL LYMPHOMA
     Route: 065
  4. BOCEPREVIR [Suspect]
     Indication: HEPATITIS C VIRUS TEST POSITIVE
     Route: 065
  5. CYCLOPHOSPHAMIDE [Suspect]
     Indication: DIFFUSE LARGE B-CELL LYMPHOMA
     Route: 065
  6. DOXORUBICIN [Suspect]
     Indication: DIFFUSE LARGE B-CELL LYMPHOMA
     Route: 065
  7. VINCRISTINE [Suspect]
     Indication: DIFFUSE LARGE B-CELL LYMPHOMA
     Route: 065
  8. PREDNISONE [Suspect]
     Indication: DIFFUSE LARGE B-CELL LYMPHOMA
     Route: 065

REACTIONS (2)
  - Diffuse large B-cell lymphoma [Recovered/Resolved]
  - Transaminases increased [Unknown]
